FAERS Safety Report 9757107 (Version 2)
Quarter: 2013Q4

REPORT INFORMATION
  Report Type: Spontaneous
  Country: JP (occurrence: JP)
  Receive Date: 20131213
  Receipt Date: 20131219
  Transmission Date: 20140711
  Serious: Yes (Other)
  Sender: FDA-Public Use
  Company Number: JP-PFIZER INC-2013357499

PATIENT
  Age: 78 Year
  Sex: Female

DRUGS (7)
  1. CELECOX [Suspect]
     Indication: PAIN MANAGEMENT
     Dosage: 200 MG, DAILY
     Route: 048
     Dates: start: 201311, end: 20131126
  2. PHENOBARBITAL [Suspect]
     Indication: EPILEPSY
     Dosage: 150 MG, DAILY
     Route: 048
     Dates: end: 20131126
  3. LYRICA [Concomitant]
     Dosage: UNK
     Dates: end: 20131126
  4. PHENYTOIN [Concomitant]
     Dosage: UNK
     Route: 048
     Dates: end: 20131126
  5. PRIMIDONE [Concomitant]
     Dosage: UNK
     Route: 048
     Dates: end: 20131126
  6. ANNACA [Concomitant]
     Dosage: UNK
     Dates: end: 20131126
  7. GASMOTIN [Concomitant]
     Dosage: UNK
     Route: 048
     Dates: end: 20131126

REACTIONS (3)
  - Drug level increased [Recovered/Resolved]
  - Restlessness [Recovered/Resolved]
  - Nasopharyngitis [Unknown]
